FAERS Safety Report 8283987-9 (Version None)
Quarter: 2012Q2

REPORT INFORMATION
  Report Type: 
  Country: None (occurrence: None)
  Receive Date: 20120413
  Receipt Date: 20111028
  Transmission Date: 20120825
  Serious: No
  Sender: FDA-Public Use
  Company Number: US-ASTRAZENECA-2011SE57908

PATIENT
  Age: 39 Year
  Sex: Female

DRUGS (4)
  1. PRILOSEC [Suspect]
     Indication: OESOPHAGITIS
     Route: 048
  2. PRILOSEC [Suspect]
     Indication: HIATUS HERNIA
     Route: 048
  3. PRILOSEC OTC [Suspect]
     Route: 048
  4. NEXIUM [Suspect]
     Route: 048

REACTIONS (5)
  - DYSPEPSIA [None]
  - ADVERSE EVENT [None]
  - GASTROOESOPHAGEAL REFLUX DISEASE [None]
  - HIATUS HERNIA [None]
  - CONDITION AGGRAVATED [None]
